FAERS Safety Report 6131660-5 (Version None)
Quarter: 2009Q1

REPORT INFORMATION
  Report Type: 
  Country: None (occurrence: None)
  Receive Date: 20090325
  Receipt Date: 20090115
  Transmission Date: 20090719
  Serious: Yes (Other)
  Sender: FDA-Public Use
  Company Number: US-BRISTOL-MYERS SQUIBB COMPANY-14475370

PATIENT
  Age: 65 Year
  Sex: Male

DRUGS (3)
  1. ERBITUX [Suspect]
  2. NARCOTIC ANALGESICS [Concomitant]
     Indication: PAIN
  3. BENADRYL [Concomitant]
     Indication: PREMEDICATION

REACTIONS (2)
  - COMA [None]
  - SLUGGISHNESS [None]
